FAERS Safety Report 9075883 (Version 7)
Quarter: 2013Q4

REPORT INFORMATION
  Report Type: Spontaneous
  Country: US (occurrence: US)
  Receive Date: 20130131
  Receipt Date: 20131219
  Transmission Date: 20140711
  Serious: Yes (Hospitalization, Disabling, Other)
  Sender: FDA-Public Use
  Company Number: US-009507513-1301USA014058

PATIENT
  Sex: Female
  Weight: 70.3 kg

DRUGS (3)
  1. FOSAMAX [Suspect]
     Indication: MENOPAUSE
     Dosage: UNK
     Route: 048
     Dates: end: 2008
  2. ALENDRONATE SODIUM [Suspect]
     Indication: MENOPAUSE
     Dosage: UNK
     Dates: end: 2008
  3. HORMONES (UNSPECIFIED) [Concomitant]
     Indication: HORMONE THERAPY
     Dosage: UNK
     Dates: start: 198801, end: 2008

REACTIONS (48)
  - Femur fracture [Unknown]
  - Intramedullary rod insertion [Unknown]
  - Femur fracture [Unknown]
  - Postoperative wound infection [Unknown]
  - Wound treatment [Unknown]
  - Femur fracture [Unknown]
  - Debridement [Unknown]
  - Intramedullary rod insertion [Unknown]
  - Invasive ductal breast carcinoma [Unknown]
  - Breast lump removal [Unknown]
  - Carotid endarterectomy [Unknown]
  - Cholecystectomy [Unknown]
  - Packed red blood cell transfusion [Unknown]
  - Anaemia [Not Recovered/Not Resolved]
  - Low turnover osteopathy [Unknown]
  - Iron deficiency [Unknown]
  - Staphylococcal infection [Unknown]
  - Staphylococcal infection [Unknown]
  - Foot fracture [Unknown]
  - Adverse event [Unknown]
  - Osteoarthritis [Unknown]
  - Wrist fracture [Unknown]
  - Asthma [Unknown]
  - Hypothyroidism [Not Recovered/Not Resolved]
  - Osteoporosis [Unknown]
  - Radiotherapy to breast [Unknown]
  - Fatigue [Unknown]
  - Dyspnoea [Unknown]
  - Rales [Unknown]
  - Tachycardia [Unknown]
  - Hyperthyroidism [Unknown]
  - Peripheral vascular disorder [Unknown]
  - Spinal column stenosis [Unknown]
  - Fall [Unknown]
  - Urinary tract infection [Recovered/Resolved]
  - Reflux gastritis [Not Recovered/Not Resolved]
  - Mitral valve prolapse [Unknown]
  - Mitral valve incompetence [Unknown]
  - Sinusitis [Unknown]
  - Goitre [Unknown]
  - Impaired fasting glucose [Unknown]
  - Epidural injection [Unknown]
  - Diverticulum [Unknown]
  - Osteoarthritis [Unknown]
  - Cardiomegaly [Unknown]
  - Hysterectomy [Unknown]
  - Oophorectomy [Unknown]
  - Off label use [Unknown]
